FAERS Safety Report 5295235-2 (Version None)
Quarter: 2007Q2

REPORT INFORMATION
  Report Type: 
  Country: None (occurrence: None)
  Receive Date: 20070412
  Receipt Date: 20070331
  Transmission Date: 20071010
  Serious: Yes (Other)
  Sender: FDA-Public Use
  Company Number: US-PFIZER INC-2007026985

PATIENT
  Sex: Female
  Weight: 82.1 kg

DRUGS (4)
  1. LYRICA [Suspect]
     Indication: PAIN
  2. LYRICA [Suspect]
     Indication: SCIATICA
  3. HYDROCODONE [Concomitant]
  4. XANAX [Concomitant]

REACTIONS (3)
  - ABDOMINAL PAIN UPPER [None]
  - SWELLING [None]
  - WEIGHT DECREASED [None]
